FAERS Safety Report 6674526-4 (Version None)
Quarter: 2010Q2

REPORT INFORMATION
  Report Type: 
  Country: None (occurrence: None)
  Receive Date: 20100409
  Receipt Date: 20100401
  Transmission Date: 20101027
  Serious: Yes (Other)
  Sender: FDA-Public Use
  Company Number: FR-PFIZER INC-2010042115

PATIENT
  Age: 53 Year
  Sex: Male

DRUGS (1)
  1. TAHOR [Suspect]
     Dosage: UNK
     Dates: end: 20100317

REACTIONS (1)
  - LUNG DISORDER [None]
